FAERS Safety Report 12140653 (Version 1)
Quarter: 2016Q1

REPORT INFORMATION
  Report Type: Spontaneous
  Country: US (occurrence: None)
  Receive Date: 20160302
  Receipt Date: 20160302
  Transmission Date: 20160526
  Serious: Yes (Hospitalization)
  Sender: FDA-Public Use
  Company Number: None

PATIENT
  Age: 67 Year
  Sex: Female
  Weight: 47.9 kg

DRUGS (1)
  1. ERBITUX [Suspect]
     Active Substance: CETUXIMAB
     Dosage: TOTAL DOSE ADMINISTERED 360 MG
     Dates: end: 20140513

REACTIONS (4)
  - Hypoxia [None]
  - Dehydration [None]
  - Palpitations [None]
  - Tachycardia [None]

NARRATIVE: CASE EVENT DATE: 20140515
